FAERS Safety Report 23879550 (Version 1)
Quarter: 2024Q2

REPORT INFORMATION
  Report Type: Spontaneous
  Country: US (occurrence: None)
  Receive Date: 20240520
  Receipt Date: 20240520
  Transmission Date: 20240716
  Serious: Yes (Disabling)
  Sender: FDA-Public Use
  Company Number: None

PATIENT
  Age: 46 Year
  Sex: Female
  Weight: 59.4 kg

DRUGS (1)
  1. MOUNJARO [Suspect]
     Active Substance: TIRZEPATIDE
     Indication: Weight decreased
     Dosage: OTHER FREQUENCY : WEEKLY;?
     Route: 058
     Dates: start: 20231020, end: 20240125

REACTIONS (9)
  - Middle insomnia [None]
  - Chest pain [None]
  - Dizziness [None]
  - Tremor [None]
  - Chills [None]
  - Blood glucose decreased [None]
  - Anxiety [None]
  - Suicidal ideation [None]
  - Gastrointestinal disorder [None]

NARRATIVE: CASE EVENT DATE: 20240125
